FAERS Safety Report 5887375-1 (Version None)
Quarter: 2008Q3

REPORT INFORMATION
  Report Type: 
  Country: None (occurrence: None)
  Receive Date: 20080918
  Receipt Date: 20080908
  Transmission Date: 20090109
  Serious: Yes (Death, Hospitalization)
  Sender: FDA-Public Use
  Company Number: US-JNJFOC-20080902284

PATIENT
  Age: 16 Year
  Sex: Female

DRUGS (2)
  1. TYLENOL SINUS CONGESTION + PAIN DAYTIME COOL BURST [Suspect]
     Indication: SINUS DISORDER
  2. TYLENOL SINUS CONGESTION + PAIN DAYTIME COOL BURST [Suspect]
     Indication: HYPERSENSITIVITY
     Dosage: UNKNOWN

REACTIONS (3)
  - COMA [None]
  - HEPATIC FAILURE [None]
  - OVERDOSE [None]
